FAERS Safety Report 14578535 (Version 1)
Quarter: 2018Q1

REPORT INFORMATION
  Report Type: Spontaneous
  Country: US (occurrence: US)
  Receive Date: 20180227
  Receipt Date: 20180227
  Transmission Date: 20180509
  Serious: Yes (Other)
  Sender: FDA-Public Use
  Company Number: None

PATIENT
  Age: 69 Year
  Sex: Male
  Weight: 90 kg

DRUGS (4)
  1. ALLOPURINOL. [Suspect]
     Active Substance: ALLOPURINOL
     Indication: GOUT
     Route: 048
     Dates: start: 20111205, end: 20180116
  2. LOSARTAN. [Concomitant]
     Active Substance: LOSARTAN
     Dates: start: 20150405
  3. FENOFIBRATE. [Concomitant]
     Active Substance: FENOFIBRATE
     Dates: start: 20150818
  4. HCTZ [Concomitant]
     Active Substance: HYDROCHLOROTHIAZIDE
     Dates: start: 20110415

REACTIONS (4)
  - Dysaesthesia [None]
  - Muscle spasms [None]
  - Therapy cessation [None]
  - Polyneuropathy [None]

NARRATIVE: CASE EVENT DATE: 20170321
